FAERS Safety Report 8386202-0 (Version None)
Quarter: 2012Q2

REPORT INFORMATION
  Report Type: 
  Country: None (occurrence: None)
  Receive Date: 20120525
  Receipt Date: 20120523
  Transmission Date: 20120825
  Serious: Yes (Other)
  Sender: FDA-Public Use
  Company Number: US-PFIZER INC-2012095015

PATIENT
  Sex: Male

DRUGS (1)
  1. CELEBREX [Suspect]
     Indication: ARTHRITIS
     Dosage: UNK
     Dates: start: 19990101

REACTIONS (7)
  - MOVEMENT DISORDER [None]
  - HYPERTENSION [None]
  - GOUT [None]
  - BLOOD TRIGLYCERIDES INCREASED [None]
  - ANGIOPATHY [None]
  - ARTHROPATHY [None]
  - PAIN [None]
